FAERS Safety Report 8589547-4 (Version None)
Quarter: 2012Q3

REPORT INFORMATION
  Report Type: 
  Country: None (occurrence: None)
  Receive Date: 20120813
  Receipt Date: 20120806
  Transmission Date: 20120928
  Serious: Yes (Hospitalization, Other)
  Sender: FDA-Public Use
  Company Number: US-009507513-1202USA00872

PATIENT

DRUGS (2)
  1. VITAMINS (UNSPECIFIED) [Concomitant]
     Dosage: UNK, QD
     Dates: start: 20000101
  2. FOSAMAX [Suspect]
     Indication: OSTEOPOROSIS PROPHYLAXIS
     Dosage: 70 MG, UNK
     Route: 048
     Dates: start: 20050401, end: 20080901

REACTIONS (5)
  - CARDIAC DISORDER [None]
  - PULMONARY EMBOLISM [None]
  - ARTHROPATHY [None]
  - BURSITIS [None]
  - FEMUR FRACTURE [None]
